FAERS Safety Report 11020916 (Version 2)
Quarter: 2015Q2

REPORT INFORMATION
  Report Type: Spontaneous
  Country: CN (occurrence: CN)
  Receive Date: 20150413
  Receipt Date: 20150522
  Transmission Date: 20150821
  Serious: Yes (Other)
  Sender: FDA-Public Use
  Company Number: CN-BAYER-2015-088936

PATIENT
  Age: 48 Year
  Sex: Male

DRUGS (2)
  1. GLUCOBAY [Suspect]
     Active Substance: ACARBOSE
     Dosage: 2 DF, UNK
  2. GLUCOBAY [Suspect]
     Active Substance: ACARBOSE
     Dosage: 50 MG, TID

REACTIONS (2)
  - Blood glucose increased [None]
  - Diarrhoea [None]
